FAERS Safety Report 25859451 (Version 3)
Quarter: 2025Q4

REPORT INFORMATION
  Report Type: Report from Study
  Country: CH (occurrence: CH)
  Receive Date: 20250929
  Receipt Date: 20251103
  Transmission Date: 20260118
  Serious: Yes (Other)
  Sender: NOVARTIS
  Company Number: CH-002147023-NVSC2024CH158408

PATIENT
  Sex: Male

DRUGS (4)
  1. ARZERRA [Suspect]
     Active Substance: OFATUMUMAB
     Indication: Multiple sclerosis
     Dosage: 20 MG, QMO
     Route: 058
     Dates: start: 20240325
  2. IBUPROFEN [Concomitant]
     Active Substance: IBUPROFEN
     Indication: Product used for unknown indication
     Dosage: 600 MG, Q8H
     Route: 048
     Dates: start: 20240621
  3. VITAMIN D3 [Concomitant]
     Active Substance: CHOLECALCIFEROL
     Indication: Product used for unknown indication
     Dosage: UNK, QD (2000E)
     Route: 048
     Dates: start: 20230501
  4. OZANIMOD [Concomitant]
     Active Substance: OZANIMOD
     Indication: Product used for unknown indication
     Dosage: 0.92 MG
     Route: 048
     Dates: start: 20230501, end: 20240201

REACTIONS (5)
  - Gastroenteritis Escherichia coli [Recovered/Resolved with Sequelae]
  - Abdominal pain [Recovering/Resolving]
  - Diarrhoea [Recovering/Resolving]
  - Bowel movement irregularity [Unknown]
  - Headache [Not Recovered/Not Resolved]

NARRATIVE: CASE EVENT DATE: 20240326
